FAERS Safety Report 4703784-8 (Version None)
Quarter: 2005Q2

REPORT INFORMATION
  Report Type: 
  Country: None (occurrence: None)
  Receive Date: 20050629
  Receipt Date: 20050629
  Transmission Date: 20051028
  Serious: Yes (Disabling)
  Sender: FDA-Public Use
  Company Number: None

PATIENT
  Age: 80 Year
  Sex: Female
  Weight: 55.3388 kg

DRUGS (1)
  1. ZOCOR [Suspect]
     Indication: HYPERLIPIDAEMIA
     Dosage: 1 QD PO
     Route: 048
     Dates: start: 20050120, end: 20050607

REACTIONS (4)
  - ARTHRALGIA [None]
  - ATRIAL FIBRILLATION [None]
  - MYALGIA [None]
  - MYOCARDIAL INFARCTION [None]
